FAERS Safety Report 12485854 (Version 1)
Quarter: 2016Q2

REPORT INFORMATION
  Report Type: Spontaneous
  Country: US (occurrence: US)
  Receive Date: 20160621
  Receipt Date: 20160621
  Transmission Date: 20160815
  Serious: No
  Sender: FDA-Public Use
  Company Number: US-BEH-2016070336

PATIENT
  Age: 70 Year
  Sex: Female
  Weight: 68.27 kg

DRUGS (29)
  1. HEPARIN [Concomitant]
     Active Substance: HEPARIN SODIUM
  2. DIPHENHYDRAMINE. [Concomitant]
     Active Substance: DIPHENHYDRAMINE
  3. OMEPRAZOLE. [Concomitant]
     Active Substance: OMEPRAZOLE
  4. XOPENEX [Concomitant]
     Active Substance: LEVALBUTEROL HYDROCHLORIDE
  5. ZEMAIRA [Suspect]
     Active Substance: .ALPHA.1-PROTEINASE INHIBITOR HUMAN
     Indication: ACQUIRED COMPLEMENT DEFICIENCY DISEASE
     Dosage: 60 MG/KG, QW
     Route: 042
  6. RANEXA [Concomitant]
     Active Substance: RANOLAZINE
  7. NITROFURANTOIN. [Concomitant]
     Active Substance: NITROFURANTOIN
  8. VITAMIN K [Concomitant]
     Active Substance: PHYTONADIONE
  9. COENZYME Q10 [Concomitant]
     Active Substance: UBIDECARENONE
  10. FISH OIL [Concomitant]
     Active Substance: FISH OIL
  11. SPIRIVA [Concomitant]
     Active Substance: TIOTROPIUM BROMIDE MONOHYDRATE
  12. SODIUM CHLORIDE. [Concomitant]
     Active Substance: SODIUM CHLORIDE
  13. MULTIVITAMINS [Concomitant]
     Active Substance: VITAMINS
  14. AVELOX [Concomitant]
     Active Substance: MOXIFLOXACIN HYDROCHLORIDE
  15. OXYGEN. [Concomitant]
     Active Substance: OXYGEN
  16. IMITREX [Concomitant]
     Active Substance: SUMATRIPTAN SUCCINATE
  17. TERBINAFINE. [Concomitant]
     Active Substance: TERBINAFINE
  18. ATENOLOL. [Concomitant]
     Active Substance: ATENOLOL
  19. ASPIRIN. [Concomitant]
     Active Substance: ASPIRIN
  20. CALCIUM+VITAMIN D3 [Concomitant]
  21. VIGAMOX [Concomitant]
     Active Substance: MOXIFLOXACIN HYDROCHLORIDE
  22. LMX                                /00033401/ [Concomitant]
  23. CHERATUSSIN AC [Concomitant]
     Active Substance: CODEINE PHOSPHATE\GUAIFENESIN
  24. LIPITOR [Concomitant]
     Active Substance: ATORVASTATIN CALCIUM
  25. TYLENOL [Concomitant]
     Active Substance: ACETAMINOPHEN
  26. PREDNISOLONE ACETATE. [Concomitant]
     Active Substance: PREDNISOLONE ACETATE
  27. BROMFENAC [Concomitant]
     Active Substance: BROMFENAC SODIUM
  28. SYMBICORT [Concomitant]
     Active Substance: BUDESONIDE\FORMOTEROL FUMARATE DIHYDRATE
  29. ACIDOPHILUS [Concomitant]
     Active Substance: LACTOBACILLUS ACIDOPHILUS

REACTIONS (1)
  - Bronchitis [Unknown]

NARRATIVE: CASE EVENT DATE: 20151221
